FAERS Safety Report 20439062 (Version 1)
Quarter: 2022Q1

REPORT INFORMATION
  Report Type: Spontaneous
  Country: US (occurrence: None)
  Receive Date: 20220204
  Receipt Date: 20220204
  Transmission Date: 20220423
  Serious: No
  Sender: FDA-Public Use
  Company Number: None

PATIENT
  Sex: Male
  Weight: 88.9 kg

DRUGS (12)
  1. ALECENSA [Suspect]
     Active Substance: ALECTINIB HYDROCHLORIDE
     Indication: Lung neoplasm malignant
     Dosage: FREQUENCY : TWICE A DAY;?
     Route: 048
  2. NYSTATIN [Concomitant]
     Active Substance: NYSTATIN
  3. ALBUTEROL\IPRATROPIUM [Concomitant]
     Active Substance: ALBUTEROL\IPRATROPIUM
  4. DEXAMETHASONE [Concomitant]
     Active Substance: DEXAMETHASONE
  5. MAGNESIUM OXIDE [Concomitant]
     Active Substance: MAGNESIUM OXIDE
  6. PANTOPRAZOLE [Concomitant]
     Active Substance: PANTOPRAZOLE
  7. FENTANYL [Concomitant]
     Active Substance: FENTANYL
  8. SENOKOT [Concomitant]
     Active Substance: SENNOSIDES
  9. LEXAPRO [Concomitant]
     Active Substance: ESCITALOPRAM OXALATE
  10. LORAZEPAM [Concomitant]
     Active Substance: LORAZEPAM
  11. CLEARLAX [Concomitant]
     Active Substance: POLYETHYLENE GLYCOL 3350
  12. ONDANSETRON [Concomitant]
     Active Substance: ONDANSETRON

REACTIONS (1)
  - Malignant neoplasm progression [None]
